FAERS Safety Report 7958779-8 (Version None)
Quarter: 2011Q4

REPORT INFORMATION
  Report Type: 
  Country: None (occurrence: None)
  Receive Date: 20111206
  Receipt Date: 20111201
  Transmission Date: 20120403
  Serious: Yes (Death, Hospitalization)
  Sender: FDA-Public Use
  Company Number: JP-JNJFOC-20090902263

PATIENT
  Sex: Female
  Weight: 59 kg

DRUGS (25)
  1. HALCION [Concomitant]
     Indication: INSOMNIA
     Route: 048
  2. AMITRIPTYLINE HCL [Concomitant]
     Indication: DEPRESSION
     Route: 048
  3. TALION [Concomitant]
     Route: 048
  4. KARY UNI [Concomitant]
     Indication: CATARACT
     Route: 031
  5. ALMETA [Concomitant]
     Indication: RASH
     Route: 061
     Dates: start: 20090729, end: 20090817
  6. DOXORUBICIN HCL [Suspect]
     Indication: OVARIAN CANCER RECURRENT
     Dosage: CYCLE 2
     Route: 042
     Dates: start: 20090925, end: 20090925
  7. FAMOTIDINE [Concomitant]
     Indication: PROPHYLAXIS
     Route: 048
     Dates: start: 20090903
  8. PYRINAZIN [Concomitant]
     Indication: ARTHRITIS
     Route: 048
  9. PREDNISOLONE [Concomitant]
     Route: 048
  10. CALCITRIOL [Concomitant]
     Indication: OSTEOPOROSIS
     Route: 048
  11. PURSENNID [Concomitant]
     Indication: CONSTIPATION
     Route: 048
  12. TIMOPTOL [Concomitant]
     Indication: GLAUCOMA
     Route: 031
  13. FLUTICASONE PROPIONATE/SALMETEROL [Concomitant]
     Indication: ASTHMA
     Route: 055
  14. MOHRUS TAPE [Concomitant]
     Indication: ARTHRITIS
     Route: 062
  15. LAMISIL [Concomitant]
     Indication: TINEA INFECTION
     Route: 061
     Dates: start: 20090729, end: 20090820
  16. SODIUM BICARBONATE [Concomitant]
     Indication: PROPHYLAXIS
     Route: 049
     Dates: start: 20090729, end: 20090819
  17. DOXORUBICIN HCL [Suspect]
     Dosage: CYCLE 1
     Route: 042
     Dates: start: 20090715, end: 20090715
  18. ALENDRONATE SODIUM [Concomitant]
     Indication: OSTEOPOROSIS
     Route: 048
     Dates: end: 20091001
  19. CALCIUM LACTATE [Concomitant]
     Route: 048
  20. CEFAZOLIN SODIUM [Concomitant]
     Indication: DIARRHOEA
     Route: 048
  21. INDOMETHACIN [Concomitant]
     Indication: ARTHRITIS
     Route: 061
  22. AZUNOL [Concomitant]
     Indication: PROPHYLAXIS
     Route: 049
     Dates: start: 20090715
  23. DEXALTIN [Concomitant]
     Indication: STOMATITIS
     Route: 049
     Dates: start: 20090729, end: 20090817
  24. DOXORUBICIN HCL [Suspect]
     Dosage: CYCLE 3
     Route: 042
     Dates: start: 20091027, end: 20091027
  25. PASTARON [Concomitant]
     Indication: PROPHYLAXIS
     Route: 061
     Dates: start: 20090715

REACTIONS (2)
  - OVARIAN CANCER RECURRENT [None]
  - ASTHMA [None]
